FAERS Safety Report 7731231-0 (Version None)
Quarter: 2011Q3

REPORT INFORMATION
  Report Type: 
  Country: None (occurrence: None)
  Receive Date: 20110906
  Receipt Date: 20110124
  Transmission Date: 20111222
  Serious: Yes (Hospitalization)
  Sender: FDA-Public Use
  Company Number: US-BAYER-201018569NA

PATIENT
  Age: 45 Year
  Sex: Female
  Weight: 79.365 kg

DRUGS (11)
  1. YASMIN [Suspect]
     Indication: PRODUCT USED FOR UNKNOWN INDICATION
     Dosage: UNK
     Route: 048
     Dates: start: 20040101, end: 20080101
  2. VALTREX [Concomitant]
     Indication: HERPES ZOSTER
  3. OXYCODONE HCL AND ACETAMINOPHEN [Concomitant]
  4. OPIUM DERIVATIVES AND EXPECTORANTS [Concomitant]
  5. PHENTERMINE [Concomitant]
  6. ADIPEX [Concomitant]
     Dosage: UNK
     Dates: start: 20080707
  7. ONDANSERTRON HYDROCHLORIDE [Concomitant]
     Dosage: 4 MG, UNK
  8. ZITHROMAX [Concomitant]
     Dosage: UNK
     Dates: start: 20080124
  9. YAZ [Suspect]
     Indication: PRODUCT USED FOR UNKNOWN INDICATION
     Dosage: UNK UNK, UNK
     Route: 048
  10. FLEXERIL [Concomitant]
  11. MICARDIS [Concomitant]
     Indication: HYPERTENSION
     Dosage: 40 MG, UNK

REACTIONS (8)
  - CHOLECYSTITIS CHRONIC [None]
  - STRESS [None]
  - CHOLELITHIASIS [None]
  - CHOLECYSTITIS ACUTE [None]
  - PAIN [None]
  - GALLBLADDER DISORDER [None]
  - HERPES ZOSTER [None]
  - BILIARY DYSKINESIA [None]
